FAERS Safety Report 17436102 (Version 1)
Quarter: 2020Q1

REPORT INFORMATION
  Report Type: Spontaneous
  Country: CA (occurrence: CA)
  Receive Date: 20200219
  Receipt Date: 20200219
  Transmission Date: 20200409
  Serious: Yes (Other)
  Sender: FDA-Public Use
  Company Number: CA-BAXTER-2020BAX003715

PATIENT

DRUGS (15)
  1. UROMITEXAN (MESNA INJECTION) 100MG/ML [Suspect]
     Active Substance: MESNA
     Indication: PROPHYLAXIS AGAINST GRAFT VERSUS HOST DISEASE
  2. PROCYTOX (CYCLOPHOSPHAMIDE) 2000MG/VIAL [Suspect]
     Active Substance: CYCLOPHOSPHAMIDE
     Indication: TRANSPLANT REJECTION
     Dosage: DOSAGE FORM- NOT SPECIFIED
     Route: 042
  3. ANTILYMPHOCYTE IMMUNOGLOBULIN [Suspect]
     Active Substance: THYMOCYTE IMMUNE GLOBULIN NOS
     Indication: BONE MARROW CONDITIONING REGIMEN
     Route: 042
  4. POSACONAZOLE [Concomitant]
     Active Substance: POSACONAZOLE
     Indication: ANTIFUNGAL PROPHYLAXIS
     Route: 065
  5. PROCYTOX (CYCLOPHOSPHAMIDE) 2000MG/VIAL [Suspect]
     Active Substance: CYCLOPHOSPHAMIDE
     Indication: PROPHYLAXIS AGAINST GRAFT VERSUS HOST DISEASE
  6. BUSULFAN. [Suspect]
     Active Substance: BUSULFAN
     Indication: BONE MARROW CONDITIONING REGIMEN
     Dosage: DOSAGE FORM- NOT SPECIFIED
     Route: 042
  7. CICLOSPORIN [Suspect]
     Active Substance: CYCLOSPORINE
     Indication: PROPHYLAXIS AGAINST GRAFT VERSUS HOST DISEASE
     Dosage: DOSAGE FORM- NOT SPECIFIED
     Route: 042
  8. CIPROFLOXACIN. [Concomitant]
     Active Substance: CIPROFLOXACIN
     Indication: PROPHYLAXIS
     Dosage: DOSAGE FORM- NOT SPECIFIED
     Route: 065
  9. PENTAMIDINE [Concomitant]
     Active Substance: PENTAMIDINE
     Indication: PROPHYLAXIS
     Dosage: ROUTE- INHALATION
     Route: 050
  10. UROMITEXAN (MESNA INJECTION) 100MG/ML [Suspect]
     Active Substance: MESNA
     Indication: TRANSPLANT REJECTION
     Dosage: DOSAGE FORM- NOT SPECIFIED
     Route: 065
  11. FLUDARABINE [Suspect]
     Active Substance: FLUDARABINE PHOSPHATE
     Indication: BONE MARROW CONDITIONING REGIMEN
     Route: 042
  12. FILGRASTIM [Concomitant]
     Active Substance: FILGRASTIM
     Indication: PRODUCT USED FOR UNKNOWN INDICATION
     Route: 058
  13. URSODEOXYCHOLIC ACID [Concomitant]
     Active Substance: URSODIOL
     Indication: PROPHYLAXIS
     Dosage: DOSAGE FORM- NOT SPECIFIED
     Route: 048
  14. ANTILYMPHOCYTE IMMUNOGLOBULIN [Suspect]
     Active Substance: THYMOCYTE IMMUNE GLOBULIN NOS
     Route: 042
  15. ACYCLOVIR. [Concomitant]
     Active Substance: ACYCLOVIR
     Indication: ANTIVIRAL PROPHYLAXIS
     Dosage: DOSAGE FORM - NOT SPECIFIED
     Route: 065

REACTIONS (1)
  - BK virus infection [Unknown]
